FAERS Safety Report 16430123 (Version 1)
Quarter: 2019Q2

REPORT INFORMATION
  Report Type: Spontaneous
  Country: DE (occurrence: DE)
  Receive Date: 20190614
  Receipt Date: 20190614
  Transmission Date: 20190711
  Serious: Yes (Other)
  Sender: FDA-Public Use
  Company Number: DE-SA-2019SA156143

PATIENT
  Age: 20 Year
  Sex: Male

DRUGS (2)
  1. CERDELGA [Suspect]
     Active Substance: ELIGLUSTAT
     Route: 065
  2. CEREZYME [Suspect]
     Active Substance: IMIGLUCERASE
     Route: 065

REACTIONS (1)
  - Epilepsy [Unknown]
